FAERS Safety Report 9481412 (Version 1)
Quarter: 2013Q3

REPORT INFORMATION
  Report Type: Spontaneous
  Country: US (occurrence: US)
  Receive Date: 20130828
  Receipt Date: 20130828
  Transmission Date: 20140515
  Serious: Yes (Other)
  Sender: FDA-Public Use
  Company Number: US-AMGEN-KDL166437

PATIENT
  Age: 40 Year
  Sex: Female

DRUGS (1)
  1. ENBREL [Suspect]
     Indication: DERMATITIS ATOPIC
     Dosage: 50 MG, 2 TIMES/WK
     Route: 058
     Dates: start: 20060109

REACTIONS (15)
  - Pruritus [Unknown]
  - Pain [Unknown]
  - Urticaria [Unknown]
  - Scab [Unknown]
  - Secretion discharge [Unknown]
  - Skin exfoliation [Unknown]
  - Erythema [Unknown]
  - Burning sensation [Unknown]
  - Fatigue [Not Recovered/Not Resolved]
  - Insomnia [Not Recovered/Not Resolved]
  - Arthralgia [Not Recovered/Not Resolved]
  - Decreased appetite [Not Recovered/Not Resolved]
  - Injection site bruising [Not Recovered/Not Resolved]
  - Injection site pain [Not Recovered/Not Resolved]
  - Injection site reaction [Not Recovered/Not Resolved]
